FAERS Safety Report 20491180 (Version 1)
Quarter: 2022Q1

REPORT INFORMATION
  Report Type: Spontaneous
  Country: US (occurrence: None)
  Receive Date: 20220218
  Receipt Date: 20220218
  Transmission Date: 20220423
  Serious: No
  Sender: FDA-Public Use
  Company Number: None

PATIENT
  Age: 47 Year
  Sex: Female
  Weight: 114.76 kg

DRUGS (1)
  1. STELARA [Suspect]
     Active Substance: USTEKINUMAB
     Indication: Psoriasis
     Dosage: OTHER FREQUENCY : WEEK 0,4 ;  INJECT 90MG SUBCUTANEOUSLY AT WEEK 0 AND WEEK 4 AS?DIRECTED.??
     Route: 058

REACTIONS (3)
  - COVID-19 [None]
  - Therapy interrupted [None]
  - Psoriasis [None]
